FAERS Safety Report 16727456 (Version 1)
Quarter: 2019Q3

REPORT INFORMATION
  Report Type: Spontaneous
  Country: CA (occurrence: CA)
  Receive Date: 20190822
  Receipt Date: 20190822
  Transmission Date: 20191005
  Serious: Yes (Life-Threatening, Other)
  Sender: FDA-Public Use
  Company Number: CA-AUROBINDO-AUR-APL-2019-054484

PATIENT

DRUGS (7)
  1. METHADOSE SUGAR-FREE [Interacting]
     Active Substance: METHADONE HYDROCHLORIDE
     Indication: PRODUCT USED FOR UNKNOWN INDICATION
     Dosage: 50.0 MILLIGRAM, DAILY
     Route: 048
  2. CLINDAMYCIN. [Concomitant]
     Active Substance: CLINDAMYCIN
     Indication: PRODUCT USED FOR UNKNOWN INDICATION
     Dosage: UNK
     Route: 065
  3. CEFUROXIME. [Concomitant]
     Active Substance: CEFUROXIME
     Indication: PRODUCT USED FOR UNKNOWN INDICATION
     Dosage: UNK
     Route: 065
  4. CIPROFLOXACIN. [Suspect]
     Active Substance: CIPROFLOXACIN
     Indication: PNEUMONIA ASPIRATION
     Dosage: 400.0 MILLIGRAM, TWO TIMES A DAY
     Route: 042
  5. ACETAMINOPHEN;CODEINE [Interacting]
     Active Substance: ACETAMINOPHEN\CODEINE PHOSPHATE
     Indication: ANKLE FRACTURE
     Dosage: UNK
     Route: 048
  6. LEVOMEPROMAZINE [Interacting]
     Active Substance: LEVOMEPROMAZINE
     Indication: ANKLE FRACTURE
     Dosage: UNK
     Route: 048
  7. MORPHINE SULFATE. [Interacting]
     Active Substance: MORPHINE SULFATE
     Indication: ANKLE FRACTURE
     Dosage: 2.0 MILLIGRAM
     Route: 042

REACTIONS (3)
  - Drug interaction [Recovered/Resolved]
  - Toxicity to various agents [Recovered/Resolved]
  - Respiratory depression [Recovered/Resolved]
